FAERS Safety Report 7352097-7 (Version None)
Quarter: 2011Q1

REPORT INFORMATION
  Report Type: 
  Country: None (occurrence: None)
  Receive Date: 20110309
  Receipt Date: 20110309
  Transmission Date: 20110831
  Serious: No
  Sender: FDA-Public Use
  Company Number: None

PATIENT
  Sex: Male
  Weight: 87 kg

DRUGS (5)
  1. PACLITAXEL [Suspect]
     Dosage: 105 MG
  2. CETUXIMAB [Suspect]
     Dosage: 525 MG
     Dates: end: 20110215
  3. CISPLATIN [Suspect]
     Dosage: 53 MG
     Dates: end: 20110215
  4. LISINOPRIL [Concomitant]
  5. MORPHINE SULFATE LIQUID [Concomitant]

REACTIONS (4)
  - PYREXIA [None]
  - ATRIAL FIBRILLATION [None]
  - HEART RATE IRREGULAR [None]
  - HYPOPHAGIA [None]
